FAERS Safety Report 5039671-8 (Version None)
Quarter: 2006Q2

REPORT INFORMATION
  Report Type: 
  Country: None (occurrence: None)
  Receive Date: 20060629
  Receipt Date: 20060610
  Transmission Date: 20061013
  Serious: Yes (Death, Life-Threatening, Hospitalization, Disabling, Other)
  Sender: FDA-Public Use
  Company Number: JO-MERCK-0606USA01776

PATIENT
  Age: 42 Year
  Sex: Male
  Weight: 60 kg

DRUGS (3)
  1. PRIMAXIN [Suspect]
     Indication: SEPSIS
     Route: 042
  2. MAXIPIME [Concomitant]
     Route: 065
  3. TAZOCIN [Concomitant]
     Route: 065

REACTIONS (3)
  - HERPES VIRUS INFECTION [None]
  - SYSTEMIC CANDIDA [None]
  - THROMBOCYTOPENIA [None]
